FAERS Safety Report 19650537 (Version 1)
Quarter: 2021Q3

REPORT INFORMATION
  Report Type: Spontaneous
  Country: US (occurrence: US)
  Receive Date: 20210802
  Receipt Date: 20210802
  Transmission Date: 20211014
  Serious: No
  Sender: FDA-Public Use
  Company Number: US-GALDERMA-US2021012837

PATIENT

DRUGS (2)
  1. BASIC DOVE SENSITIVE SKIN BAR [Concomitant]
     Indication: ACNE
     Dosage: UNK
     Route: 061
  2. DIFFERIN GEL [Suspect]
     Active Substance: ADAPALENE
     Indication: ACNE
     Dosage: 1 DOSAGE FORM, QOD
     Route: 061

REACTIONS (3)
  - Dry skin [Unknown]
  - Intentional underdose [Recovered/Resolved]
  - Intentional product misuse [Recovered/Resolved]
